FAERS Safety Report 7228127-X (Version None)
Quarter: 2011Q1

REPORT INFORMATION
  Report Type: 
  Country: None (occurrence: None)
  Receive Date: 20110114
  Receipt Date: 20110112
  Transmission Date: 20110831
  Serious: Yes (Life-Threatening, Hospitalization, Other)
  Sender: FDA-Public Use
  Company Number: FR-B.I. PHARMACEUTICALS,INC./RIDGEFIELD-2010-FF-00189FF

PATIENT
  Sex: Female
  Weight: 59 kg

DRUGS (8)
  1. ATHYMIL [Concomitant]
     Dosage: 15 MG
  2. TOPALGIC [Concomitant]
     Dosage: 200 MG
  3. SPECIAFOLDINE [Concomitant]
  4. PRADAXA [Suspect]
     Indication: KNEE ARTHROPLASTY
     Dosage: 150 MG
     Route: 048
     Dates: start: 20091219
  5. ALDACTAZINE [Concomitant]
  6. DIFFU K [Concomitant]
  7. TARDYFERON [Concomitant]
     Dosage: 80 MG
  8. INIPOMP [Suspect]
     Dosage: 20 MG
     Route: 048

REACTIONS (4)
  - PULMONARY EMBOLISM [None]
  - DRUG INEFFECTIVE [None]
  - ANAEMIA POSTOPERATIVE [None]
  - PHLEBITIS [None]
